FAERS Safety Report 14878591 (Version 5)
Quarter: 2018Q3

REPORT INFORMATION
  Report Type: Spontaneous
  Country: ES (occurrence: ES)
  Receive Date: 20180511
  Receipt Date: 20180924
  Transmission Date: 20181010
  Serious: Yes (Other)
  Sender: FDA-Public Use
  Company Number: ES-JNJFOC-20180503029

PATIENT
  Sex: Female

DRUGS (12)
  1. BEVACIZUMAB. [Suspect]
     Active Substance: BEVACIZUMAB
     Indication: BREAST CANCER METASTATIC
     Dosage: 15 MG/KG INDUCTION THERAPY
     Route: 065
     Dates: start: 201011
  2. PACLITAXEL. [Concomitant]
     Active Substance: PACLITAXEL
     Indication: BREAST CANCER METASTATIC
     Route: 065
     Dates: start: 201302
  3. DOCETAXEL. [Concomitant]
     Active Substance: DOCETAXEL
     Indication: BREAST CANCER METASTATIC
     Dosage: 100 MG/M2; RECEIVED UP TO SIX CYCLES OF DOCETAXEL WITHOUT BEVACIZUMAB
     Route: 065
     Dates: start: 201011
  4. EXEMESTANE. [Concomitant]
     Active Substance: EXEMESTANE
     Indication: BREAST CANCER METASTATIC
     Route: 065
     Dates: start: 201309
  5. IBUPROFEN. [Suspect]
     Active Substance: IBUPROFEN
     Indication: PRODUCT USED FOR UNKNOWN INDICATION
     Route: 065
  6. VINORELBINE [Suspect]
     Active Substance: VINORELBINE\VINORELBINE TARTRATE
     Indication: BREAST CANCER METASTATIC
     Dosage: ON DAYS 1, 8
     Route: 048
     Dates: start: 201401
  7. FULVESTRANT. [Concomitant]
     Active Substance: FULVESTRANT
     Indication: BREAST CANCER METASTATIC
     Route: 065
     Dates: start: 201104
  8. IBUPROFEN. [Suspect]
     Active Substance: IBUPROFEN
     Route: 065
  9. DOXORUBICIN HYDROCHLORIDE. [Suspect]
     Active Substance: DOXORUBICIN HYDROCHLORIDE
     Indication: BREAST CANCER METASTATIC
     Route: 065
     Dates: start: 201505
  10. ERIBULIN [Suspect]
     Active Substance: ERIBULIN
     Indication: BREAST CANCER METASTATIC
     Dosage: ON DAYS 1, 8
     Route: 065
     Dates: start: 201409, end: 201505
  11. CAPECITABINE. [Suspect]
     Active Substance: CAPECITABINE
     Indication: BREAST CANCER METASTATIC
     Dosage: ON DAYS 1?14; EVERY 21 DAYS
     Route: 065
     Dates: start: 201401
  12. GEMCITABINE [Concomitant]
     Active Substance: GEMCITABINE\GEMCITABINE HYDROCHLORIDE
     Indication: BREAST CANCER METASTATIC
     Route: 065
     Dates: start: 201302

REACTIONS (5)
  - Haematotoxicity [Unknown]
  - Palmar-plantar erythrodysaesthesia syndrome [Unknown]
  - Mucosal inflammation [Unknown]
  - Hypersensitivity vasculitis [Recovered/Resolved]
  - Skin disorder [Unknown]

NARRATIVE: CASE EVENT DATE: 201303
